FAERS Safety Report 5889031-2 (Version None)
Quarter: 2008Q3

REPORT INFORMATION
  Report Type: 
  Country: None (occurrence: None)
  Receive Date: 20080919
  Receipt Date: 20070814
  Transmission Date: 20090109
  Serious: No
  Sender: FDA-Public Use
  Company Number: US-KINGPHARMUSA00001-K200701031

PATIENT

DRUGS (2)
  1. SONATA [Suspect]
     Dosage: UNK, UNK
     Route: 048
     Dates: start: 20050101
  2. OXYCODONE HCL [Concomitant]

REACTIONS (1)
  - DRUG INEFFECTIVE [None]
